FAERS Safety Report 8435048-3 (Version None)
Quarter: 2012Q2

REPORT INFORMATION
  Report Type: 
  Country: None (occurrence: None)
  Receive Date: 20120614
  Receipt Date: 20120608
  Transmission Date: 20120825
  Serious: Yes (Hospitalization, Other)
  Sender: FDA-Public Use
  Company Number: US-AMGEN-USASP2011049231

PATIENT
  Age: 32 Year
  Sex: Female
  Weight: 64.9 kg

DRUGS (6)
  1. AMOXICILLIN [Concomitant]
     Dosage: 875 MG, Q12H
     Route: 048
     Dates: start: 20120607
  2. CITALOPRAM [Concomitant]
     Dosage: 20 MG, QHS
     Route: 048
     Dates: start: 20120606
  3. LEUCOVORIN CALCIUM [Concomitant]
     Dosage: 1 MG, QD
     Route: 048
     Dates: start: 20120215
  4. METHOTREXATE [Concomitant]
     Dosage: 12.5 MG, QWK
     Route: 048
     Dates: start: 20120522
  5. METHOTREXATE [Concomitant]
     Dosage: 1 MG, QWK
     Dates: start: 20100101
  6. ENBREL [Suspect]
     Indication: RHEUMATOID ARTHRITIS
     Dosage: 50 MG, QWK
     Dates: start: 20110810

REACTIONS (7)
  - OSTEOARTHRITIS [None]
  - RHEUMATOID ARTHRITIS [None]
  - JOINT STIFFNESS [None]
  - COUGH [None]
  - SINUS CONGESTION [None]
  - APPENDICITIS [None]
  - ANXIETY [None]
